FAERS Safety Report 10357143 (Version 2)
Quarter: 2015Q1

REPORT INFORMATION
  Report Type: Spontaneous
  Country: US (occurrence: US)
  Receive Date: 20140801
  Receipt Date: 20150304
  Transmission Date: 20150720
  Serious: Yes (Other)
  Sender: FDA-Public Use
  Company Number: US-ROCHE-1437999

PATIENT
  Age: 72 Year
  Sex: Male

DRUGS (2)
  1. NAPROXEN. [Interacting]
     Active Substance: NAPROXEN
     Indication: PRODUCT USED FOR UNKNOWN INDICATION
     Route: 065
  2. VISMODEGIB [Suspect]
     Active Substance: VISMODEGIB
     Indication: BASAL CELL CARCINOMA
     Route: 065

REACTIONS (13)
  - Cholestasis [Unknown]
  - Gastrointestinal haemorrhage [Unknown]
  - Renal failure [Unknown]
  - White blood cell count increased [Unknown]
  - Melaena [Unknown]
  - Urine output decreased [Unknown]
  - Drug interaction [Unknown]
  - Aphonia [Unknown]
  - Dysgeusia [Unknown]
  - Weight decreased [Unknown]
  - Liver injury [Recovered/Resolved]
  - Muscle spasms [Recovered/Resolved]
  - Nausea [Recovering/Resolving]
